FAERS Safety Report 10268786 (Version 1)
Quarter: 2014Q2

REPORT INFORMATION
  Report Type: Spontaneous
  Country: US (occurrence: US)
  Receive Date: 20140630
  Receipt Date: 20140630
  Transmission Date: 20141212
  Serious: Yes (Other)
  Sender: FDA-Public Use
  Company Number: US-GLAXOSMITHKLINE-A1078046A

PATIENT
  Sex: Female

DRUGS (9)
  1. WELLBUTRIN SR [Suspect]
     Indication: DEPRESSION
     Dosage: 150MG TWICE PER DAY
     Route: 065
  2. BUPROPION [Suspect]
     Indication: DEPRESSION
     Route: 048
     Dates: start: 200709
  3. WELLBUTRIN XL [Suspect]
     Indication: DEPRESSION
     Dosage: 300MG PER DAY
  4. BUPROPION HYDROCHLORIDE [Suspect]
     Indication: DEPRESSION
     Dosage: 300MG PER DAY
     Dates: start: 201402
  5. DIFLUCAN [Concomitant]
  6. GRAPE SEED EXTRACT [Concomitant]
  7. FLAXSEED [Concomitant]
  8. MULTI VITAMIN [Concomitant]
  9. VITAMIN D [Concomitant]

REACTIONS (12)
  - Cardiac flutter [Unknown]
  - Drug ineffective [Unknown]
  - Dry mouth [Unknown]
  - Dizziness [Unknown]
  - Headache [Unknown]
  - Panic attack [Unknown]
  - Sleep disorder [Unknown]
  - Mood altered [Unknown]
  - Attention deficit/hyperactivity disorder [Not Recovered/Not Resolved]
  - Depressed mood [Unknown]
  - Adverse event [Unknown]
  - Overdose [Unknown]
